FAERS Safety Report 10401382 (Version 2)
Quarter: 2014Q3

REPORT INFORMATION
  Report Type: Report from Study
  Country: US (occurrence: US)
  Receive Date: 20140822
  Receipt Date: 20140822
  Transmission Date: 20150326
  Serious: Yes (Life-Threatening, Hospitalization, Other)
  Sender: FDA-Public Use
  Company Number: US-BRISTOL-MYERS SQUIBB COMPANY-19759182

PATIENT
  Age: 67 Year
  Sex: Male

DRUGS (11)
  1. NIVOLUMAB [Suspect]
     Active Substance: NIVOLUMAB
     Indication: NON-SMALL CELL LUNG CANCER
     Dosage: RECEIVED UNTIL 01OCT2013
     Route: 042
     Dates: start: 20130920
  2. COLACE CAPS 100 MG [Concomitant]
     Route: 048
  3. IPILIMUMAB [Suspect]
     Active Substance: IPILIMUMAB
     Indication: NON-SMALL CELL LUNG CANCER
     Dosage: RECEIVED UNTIL 01OCT2013
     Route: 042
     Dates: start: 20130920
  4. HYCODAN [Concomitant]
     Active Substance: HOMATROPINE METHYLBROMIDE\HYDROCODONE BITARTRATE
     Indication: COUGH
     Dosage: 1DF:5-1.5 MG/5 ML SYRUP
     Route: 048
  5. KENALOG [Concomitant]
     Active Substance: TRIAMCINOLONE ACETONIDE
  6. RESTORIL [Concomitant]
     Active Substance: TEMAZEPAM
     Route: 048
  7. ADVAIR DISKUS [Concomitant]
     Active Substance: FLUTICASONE PROPIONATE\SALMETEROL XINAFOATE
     Dosage: 1 DF: 250-50 MCG/DOSE.INHALE 1 PUFF INTO THE LUNGS 2TIMES DAILY,
     Route: 055
  8. LIPITOR [Concomitant]
     Active Substance: ATORVASTATIN CALCIUM
     Dosage: TABS
     Route: 048
  9. LOVENOX [Concomitant]
     Active Substance: ENOXAPARIN SODIUM
     Dosage: 80MG/0.8 ML SYRINGE.?INJECT 80 MG UNDER THE SKIN
  10. TYLENOL EXTRA STRENGTH [Concomitant]
     Active Substance: ACETAMINOPHEN
     Dosage: TABS.TAKE 1000MG BY MOUTH EVERY 6 HOURS AS NEEDED
     Route: 048
  11. TEMOVATE [Concomitant]
     Active Substance: CLOBETASOL PROPIONATE
     Dosage: 1DF: 0.5% CREAM

REACTIONS (2)
  - Pneumonitis [Not Recovered/Not Resolved]
  - Craniotomy [Recovered/Resolved]

NARRATIVE: CASE EVENT DATE: 20131022
